FAERS Safety Report 6827679-9 (Version None)
Quarter: 2010Q3

REPORT INFORMATION
  Report Type: 
  Country: None (occurrence: None)
  Receive Date: 20100709
  Receipt Date: 20070122
  Transmission Date: 20110219
  Serious: No
  Sender: FDA-Public Use
  Company Number: US-PFIZER INC-2007006053

PATIENT
  Sex: Female
  Weight: 97.98 kg

DRUGS (4)
  1. CHANTIX [Suspect]
     Indication: SMOKING CESSATION THERAPY
     Dates: start: 20070101
  2. CARDIOVASCULAR SYSTEM DRUGS [Concomitant]
     Indication: CARDIAC DISORDER
  3. ANTIHYPERTENSIVES [Concomitant]
     Indication: BLOOD PRESSURE ABNORMAL
  4. ALL OTHER THERAPEUTIC PRODUCTS [Concomitant]
     Indication: MENTAL DISORDER

REACTIONS (4)
  - CONSTIPATION [None]
  - FEELING ABNORMAL [None]
  - HEADACHE [None]
  - NAUSEA [None]
